FAERS Safety Report 5831371-7 (Version None)
Quarter: 2008Q3

REPORT INFORMATION
  Report Type: 
  Country: None (occurrence: None)
  Receive Date: 20080801
  Receipt Date: 20080710
  Transmission Date: 20090109
  Serious: No
  Sender: FDA-Public Use
  Company Number: US-BOEHRINGER INGELHEIM GMBH, GERMANY-2008-BP-09889BP

PATIENT
  Sex: Female

DRUGS (5)
  1. FLOMAX [Suspect]
     Indication: BLADDER DISORDER
     Route: 048
     Dates: start: 20080623, end: 20080626
  2. FLOMAX [Suspect]
     Indication: URINARY RETENTION
  3. VITAMIN TAB [Concomitant]
  4. ZYRTEC [Concomitant]
  5. CITRICAL [Concomitant]

REACTIONS (6)
  - ABDOMINAL PAIN [None]
  - BODY TEMPERATURE INCREASED [None]
  - DIARRHOEA [None]
  - HEADACHE [None]
  - NAUSEA [None]
  - SINUS CONGESTION [None]
